FAERS Safety Report 19211773 (Version 1)
Quarter: 2021Q2

REPORT INFORMATION
  Report Type: Spontaneous
  Country: FR (occurrence: FR)
  Receive Date: 20210504
  Receipt Date: 20210504
  Transmission Date: 20210717
  Serious: Yes (Other)
  Sender: FDA-Public Use
  Company Number: FR-ASTRAZENECA-2021A384223

PATIENT
  Age: 81 Year
  Sex: Male

DRUGS (1)
  1. SYMBICORT [Suspect]
     Active Substance: BUDESONIDE\FORMOTEROL FUMARATE DIHYDRATE
     Indication: BRONCHITIS CHRONIC
     Dosage: 400 MCG/ 12 MCG AT UNSPECIFIED FREQUENCY 320/9 UG PER DOSE UNKNOWN
     Route: 055
     Dates: start: 2006

REACTIONS (2)
  - Laryngeal cancer [Unknown]
  - Off label use [Unknown]

NARRATIVE: CASE EVENT DATE: 2019
